FAERS Safety Report 26055082 (Version 1)
Quarter: 2025Q4

REPORT INFORMATION
  Report Type: Report from Study
  Country: EU (occurrence: EU)
  Receive Date: 20251117
  Receipt Date: 20251117
  Transmission Date: 20260118
  Serious: Yes (Other)
  Sender: MYLAN
  Company Number: EU-KRKA-HU2025K18759STU

PATIENT
  Age: 74 Year
  Sex: Male
  Weight: 96 kg

DRUGS (4)
  1. DABIGATRAN [Suspect]
     Active Substance: DABIGATRAN
     Indication: Atrial fibrillation
     Dosage: 150 MILLIGRAM, BID (150 MG, 2X PER DAY) (CAPSULE, HARD)
     Dates: start: 202507
  2. DABIGATRAN [Suspect]
     Active Substance: DABIGATRAN
     Dosage: 150 MILLIGRAM, BID (150 MG, 2X PER DAY) (CAPSULE, HARD)
     Route: 048
     Dates: start: 202507
  3. DABIGATRAN [Suspect]
     Active Substance: DABIGATRAN
     Dosage: 150 MILLIGRAM, BID (150 MG, 2X PER DAY) (CAPSULE, HARD)
     Route: 048
     Dates: start: 202507
  4. DABIGATRAN [Suspect]
     Active Substance: DABIGATRAN
     Dosage: 150 MILLIGRAM, BID (150 MG, 2X PER DAY) (CAPSULE, HARD)
     Dates: start: 202507

REACTIONS (1)
  - Atrial thrombosis [Unknown]
